FAERS Safety Report 17495580 (Version 3)
Quarter: 2020Q3

REPORT INFORMATION
  Report Type: Spontaneous
  Country: US (occurrence: US)
  Receive Date: 20200304
  Receipt Date: 20200710
  Transmission Date: 20201102
  Serious: No
  Sender: FDA-Public Use
  Company Number: US-PFIZER INC-2019132435

PATIENT
  Age: 68 Year
  Sex: Male
  Weight: 99.79 kg

DRUGS (1)
  1. NARDIL [Suspect]
     Active Substance: PHENELZINE SULFATE
     Indication: DEPRESSION
     Dosage: 45 MG, 2X/DAY (3 TABS BID/6 TABLETS A DAY)
     Route: 048
     Dates: start: 1982, end: 20200703

REACTIONS (4)
  - Intentional product misuse [Unknown]
  - Poor quality product administered [Unknown]
  - Product physical issue [Unknown]
  - Drug ineffective [Unknown]
